FAERS Safety Report 6646203-7 (Version None)
Quarter: 2010Q1

REPORT INFORMATION
  Report Type: 
  Country: None (occurrence: None)
  Receive Date: 20100323
  Receipt Date: 20100317
  Transmission Date: 20100710
  Serious: Yes (Hospitalization)
  Sender: FDA-Public Use
  Company Number: FR-ROCHE-685343

PATIENT
  Sex: Female
  Weight: 65 kg

DRUGS (8)
  1. BONIVA [Suspect]
     Indication: OSTEOPOROSIS
     Route: 048
  2. HEMIGOXINE NATIVELLE [Concomitant]
  3. PARIET [Concomitant]
  4. LOGIMAX [Concomitant]
  5. LODOZ [Concomitant]
  6. MONICOR L.P. [Concomitant]
     Dosage: DRUG REPORTE DAS : MONICOR LP 60
  7. LEXOMIL [Concomitant]
  8. PIASCLEDINE [Concomitant]

REACTIONS (2)
  - HAEMATOMA [None]
  - THROMBOCYTOPENIA [None]
